FAERS Safety Report 5107041-X (Version None)
Quarter: 2006Q3

REPORT INFORMATION
  Report Type: 
  Country: None (occurrence: None)
  Receive Date: 20060913
  Receipt Date: 20060905
  Transmission Date: 20061208
  Serious: Yes (Other)
  Sender: FDA-Public Use
  Company Number: GXKR2006CH05475

PATIENT
  Age: 58 Year
  Sex: Male

DRUGS (2)
  1. PREDNISOLONE [Suspect]
     Indication: INTESTINAL POLYP
     Dosage: 60 MG, ONCE/SINGLE, ORAL
     Route: 048
  2. TRIAMCINOLONE ACETONIDE [Concomitant]

REACTIONS (4)
  - ACUTE GENERALISED EXANTHEMATOUS PUSTULOSIS [None]
  - LYMPHOCYTE STIMULATION TEST POSITIVE [None]
  - RASH MACULO-PAPULAR [None]
  - SKIN TEST POSITIVE [None]
